FAERS Safety Report 6725037-9 (Version None)
Quarter: 2010Q2

REPORT INFORMATION
  Report Type: 
  Country: None (occurrence: None)
  Receive Date: 20100514
  Receipt Date: 20100510
  Transmission Date: 20101027
  Serious: No
  Sender: FDA-Public Use
  Company Number: US-BIOGENIDEC-2010BI015328

PATIENT
  Age: 51 Year
  Sex: Female

DRUGS (4)
  1. AVONEX [Suspect]
     Indication: MULTIPLE SCLEROSIS
     Route: 030
     Dates: start: 20100406
  2. GUINAPRIL [Concomitant]
     Indication: HYPERTENSION
     Route: 048
     Dates: start: 19860101
  3. HYDROCHLOROTHIAZINE [Concomitant]
     Indication: HYPERTENSION
     Route: 048
     Dates: start: 19860101
  4. METFORMIN HYDROCHLORIDE [Concomitant]
     Indication: DIABETES MELLITUS
     Route: 048
     Dates: start: 20030101

REACTIONS (5)
  - DEPRESSION [None]
  - MUSCLE SPASMS [None]
  - PAIN IN EXTREMITY [None]
  - POLLAKIURIA [None]
  - URINARY INCONTINENCE [None]
